FAERS Safety Report 21060138 (Version 1)
Quarter: 2022Q3

REPORT INFORMATION
  Report Type: Spontaneous
  Country: US (occurrence: US)
  Receive Date: 20220708
  Receipt Date: 20220708
  Transmission Date: 20221026
  Serious: No
  Sender: FDA-Public Use
  Company Number: US-SA-SAC20220630000467

PATIENT
  Sex: Male

DRUGS (1)
  1. DUPIXENT [Suspect]
     Active Substance: DUPILUMAB
     Indication: Dermatitis atopic
     Dosage: 300 MG, FREQUENCY: EVERY OTHER WEEK
     Route: 058
     Dates: start: 20220627

REACTIONS (5)
  - Dry skin [Unknown]
  - Skin fissures [Unknown]
  - Condition aggravated [Unknown]
  - Erythema [Unknown]
  - Condition aggravated [Unknown]
